FAERS Safety Report 10239721 (Version 2)
Quarter: 2014Q2

REPORT INFORMATION
  Report Type: Report from Study
  Country: US (occurrence: US)
  Receive Date: 20140616
  Receipt Date: 20140627
  Transmission Date: 20141212
  Serious: Yes (Death)
  Sender: FDA-Public Use
  Company Number: US-ACTELION-A-US2014-100101

PATIENT
  Age: 67 Year
  Sex: Male

DRUGS (2)
  1. MACITENTAN [Suspect]
     Indication: PULMONARY HYPERTENSION
     Dosage: 10 MG, QD
     Route: 048
     Dates: start: 20140306
  2. ADCIRCA [Concomitant]

REACTIONS (2)
  - Pulmonary hypertension [Fatal]
  - Disease progression [Fatal]
